FAERS Safety Report 18313539 (Version 1)
Quarter: 2020Q3

REPORT INFORMATION
  Report Type: Report from Study
  Country: US (occurrence: US)
  Receive Date: 20200925
  Receipt Date: 20200925
  Transmission Date: 20201103
  Serious: Yes (Congenital Anomaly, Other)
  Sender: FDA-Public Use
  Company Number: NVSC2020US179847

PATIENT
  Age: 32 Week
  Sex: Female

DRUGS (5)
  1. SYNTHROID [Concomitant]
     Active Substance: LEVOTHYROXINE SODIUM
     Indication: FOETAL EXPOSURE DURING PREGNANCY
     Dosage: MATERNAL DOSE: 100 UG, QD
     Route: 064
  2. GILENYA [Suspect]
     Active Substance: FINGOLIMOD HYDROCHLORIDE
     Indication: FOETAL EXPOSURE DURING PREGNANCY
     Dosage: MATERNAL DOSE: 0.5 MG, QD
     Route: 064
  3. VITAMIN D [Concomitant]
     Active Substance: VITAMIN D NOS
     Indication: FOETAL EXPOSURE DURING PREGNANCY
     Dosage: MATERNAL DOSE: 5000 IU, QD
     Route: 064
  4. SRONYX [Concomitant]
     Active Substance: ETHINYL ESTRADIOL\LEVONORGESTREL
     Indication: FOETAL EXPOSURE DURING PREGNANCY
     Dosage: MATERNAL DOSE: LEVONORGESTREL 0.1 MG, ESTRADIOL .02 MG, QD
     Route: 064
  5. LEVOTHYROXINE. [Concomitant]
     Active Substance: LEVOTHYROXINE
     Indication: FOETAL EXPOSURE DURING PREGNANCY
     Dosage: MATERNAL DOSE: 100 UG, QD
     Route: 064

REACTIONS (3)
  - Atrial septal defect [Unknown]
  - Patent ductus arteriosus [Unknown]
  - Foetal exposure during pregnancy [Unknown]
